FAERS Safety Report 4396385-5 (Version None)
Quarter: 2004Q3

REPORT INFORMATION
  Report Type: 
  Country: None (occurrence: None)
  Receive Date: 20040708
  Receipt Date: 20040622
  Transmission Date: 20050211
  Serious: Yes (Hospitalization)
  Sender: FDA-Public Use
  Company Number: FRWYE843822JUN04

PATIENT
  Age: 69 Year
  Sex: Female

DRUGS (4)
  1. SOPROL (BISOPROLOL, TABLET, 0) [Suspect]
     Indication: HYPERTENSION
     Dosage: ORAL
     Route: 048
  2. LEVOTHYROXINE SODIUM [Suspect]
     Indication: HYPOTHYROIDISM
     Dosage: ORAL
     Route: 048
     Dates: start: 19990105
  3. LIPANOR (CIPROFIBRATE, , 0) [Suspect]
     Indication: HYPERCHOLESTEROLAEMIA
     Dosage: ORAL
     Route: 048
  4. ZESTORETIC (LISINOPRIL/HYDROCHLOROTHIAZIDE, , 0) [Suspect]
     Indication: HYPERTENSION
     Dosage: 1 CAPSULE 1X PER 1 DAY ORAL
     Route: 048

REACTIONS (1)
  - EOSINOPHILIA [None]
